FAERS Safety Report 9215358 (Version 1)
Quarter: 2013Q2

REPORT INFORMATION
  Report Type: Spontaneous
  Country: NO (occurrence: NO)
  Receive Date: 20130405
  Receipt Date: 20130405
  Transmission Date: 20140414
  Serious: Yes (Other)
  Sender: FDA-Public Use
  Company Number: NO-WATSON-2013-06200

PATIENT
  Age: 47 Year
  Sex: Female

DRUGS (4)
  1. LEVETIRACETAM (UNKNOWN) [Suspect]
     Indication: EPILEPSY
     Dosage: 4000 MG, DAILY
     Route: 065
  2. LEVETIRACETAM (UNKNOWN) [Suspect]
     Dosage: DOSE CHANGE
     Route: 065
  3. CARBAMAZEPINE [Concomitant]
     Indication: EPILEPSY
     Dosage: DOSE UNK
     Route: 065
  4. CARBAMAZEPINE [Concomitant]
     Dosage: DOSE CHANGE
     Route: 065

REACTIONS (4)
  - Abortion spontaneous [Unknown]
  - Pregnancy [Unknown]
  - Overdose [Unknown]
  - Maternal exposure during pregnancy [Unknown]
